FAERS Safety Report 18511744 (Version 1)
Quarter: 2020Q4

REPORT INFORMATION
  Report Type: Report from Study
  Country: IT (occurrence: IT)
  Receive Date: 20201117
  Receipt Date: 20201117
  Transmission Date: 20210114
  Serious: Yes (Other)
  Sender: FDA-Public Use
  Company Number: IT-PFIZER INC-2020450826

PATIENT
  Age: 56 Year
  Sex: Female

DRUGS (3)
  1. NEO-LOTAN PLUS [Concomitant]
     Active Substance: HYDROCHLOROTHIAZIDE\LOSARTAN POTASSIUM
     Dosage: 50/12.5 MG, 1X/DAY
     Route: 048
  2. EUTIROX [Concomitant]
     Active Substance: LEVOTHYROXINE SODIUM
     Dosage: 50 UG, 1X/DAY
  3. PANTOPRAZOLE [Suspect]
     Active Substance: PANTOPRAZOLE
     Indication: GASTROOESOPHAGEAL REFLUX DISEASE
     Dosage: 1 DF, TOTAL
     Route: 048
     Dates: start: 20200829, end: 20200829

REACTIONS (4)
  - Hypersensitivity [Recovering/Resolving]
  - Pharyngeal oedema [Recovering/Resolving]
  - Tongue oedema [Recovering/Resolving]
  - Face oedema [Recovering/Resolving]

NARRATIVE: CASE EVENT DATE: 20200829
